FAERS Safety Report 24290768 (Version 1)
Quarter: 2024Q3

REPORT INFORMATION
  Report Type: Spontaneous
  Country: US (occurrence: US)
  Receive Date: 20240906
  Receipt Date: 20240906
  Transmission Date: 20241017
  Serious: Yes (Other)
  Sender: BLUEPRINT MEDICINES
  Company Number: US-BLUEPRINT MEDICINES CORPORATION-2024BUS004497

PATIENT

DRUGS (1)
  1. GAVRETO [Suspect]
     Active Substance: PRALSETINIB
     Indication: Lung neoplasm malignant
     Dosage: 300 MILLIGRAM, QD
     Route: 048
     Dates: start: 20240710

REACTIONS (3)
  - Hypertrophic cardiomyopathy [Unknown]
  - Constipation [Unknown]
  - Hypertension [Unknown]
